FAERS Safety Report 7586264-4 (Version None)
Quarter: 2011Q3

REPORT INFORMATION
  Report Type: 
  Country: None (occurrence: None)
  Receive Date: 20110701
  Receipt Date: 20110623
  Transmission Date: 20111222
  Serious: Yes (Other)
  Sender: FDA-Public Use
  Company Number: US-ABBOTT-11P-163-0734693-00

PATIENT
  Sex: Female
  Weight: 53.572 kg

DRUGS (4)
  1. NAPROXEN (ALEVE) [Concomitant]
     Indication: RHEUMATOID ARTHRITIS
  2. HUMIRA [Suspect]
     Indication: RHEUMATOID ARTHRITIS
     Route: 058
     Dates: start: 20110619
  3. VIMOVO [Concomitant]
     Indication: RHEUMATOID ARTHRITIS
  4. TRAMADOL HCL [Concomitant]
     Indication: RHEUMATOID ARTHRITIS

REACTIONS (4)
  - DYSPHAGIA [None]
  - SWOLLEN TONGUE [None]
  - PHARYNGEAL OEDEMA [None]
  - SKIN ODOUR ABNORMAL [None]
